FAERS Safety Report 6185152-8 (Version None)
Quarter: 2009Q2

REPORT INFORMATION
  Report Type: 
  Country: None (occurrence: None)
  Receive Date: 20090511
  Receipt Date: 20090501
  Transmission Date: 20091009
  Serious: Yes (Hospitalization)
  Sender: FDA-Public Use
  Company Number: US-PFIZER INC-2009206539

PATIENT
  Sex: Female

DRUGS (1)
  1. DETROL LA [Suspect]

REACTIONS (7)
  - ARTHROPATHY [None]
  - BLADDER DISORDER [None]
  - DRUG INEFFECTIVE [None]
  - FALL [None]
  - MENTAL IMPAIRMENT [None]
  - PARANOIA [None]
  - VISUAL ACUITY REDUCED [None]
